FAERS Safety Report 5395894-X (Version None)
Quarter: 2007Q3

REPORT INFORMATION
  Report Type: 
  Country: None (occurrence: None)
  Receive Date: 20070724
  Receipt Date: 20070712
  Transmission Date: 20080115
  Serious: Yes (Death, Hospitalization)
  Sender: FDA-Public Use
  Company Number: US-PFIZER INC-2007049561

PATIENT
  Age: 59 Year
  Sex: Male

DRUGS (4)
  1. SUTENT [Suspect]
     Indication: RENAL CELL CARCINOMA STAGE UNSPECIFIED
     Route: 048
     Dates: start: 20070503, end: 20070529
  2. IBUPROFEN [Concomitant]
  3. TYLENOL W/ CODEINE [Concomitant]
  4. ZIAC [Concomitant]
     Dosage: TEXT:2.5/6.25 MG

REACTIONS (6)
  - ANAEMIA [None]
  - DISEASE PROGRESSION [None]
  - GASTROINTESTINAL HAEMORRHAGE [None]
  - HICCUPS [None]
  - INFECTION [None]
  - RENAL CELL CARCINOMA STAGE UNSPECIFIED [None]
